FAERS Safety Report 5772473-3 (Version None)
Quarter: 2008Q2

REPORT INFORMATION
  Report Type: 
  Country: None (occurrence: None)
  Receive Date: 20080613
  Receipt Date: 20080604
  Transmission Date: 20081010
  Serious: Yes (Hospitalization)
  Sender: FDA-Public Use
  Company Number: US-ELI_LILLY_AND_COMPANY-US200806000907

PATIENT
  Sex: Male

DRUGS (4)
  1. HUMALOG [Suspect]
     Dosage: 70 U, DAILY (1/D)
     Dates: start: 20030101
  2. RAMIPRIL [Concomitant]
     Dosage: 10 MG, UNK
  3. LIPITOR [Concomitant]
     Dosage: 10 MG, UNK
  4. TOPROL-XL [Concomitant]
     Dosage: 50 MG, UNK

REACTIONS (4)
  - BLOOD GLUCOSE INCREASED [None]
  - DRUG INEFFECTIVE [None]
  - KETOACIDOSIS [None]
  - MALAISE [None]
